FAERS Safety Report 5973114 (Version 12)
Quarter: 2014Q1

REPORT INFORMATION
  Report Type: Spontaneous
  Country: US (occurrence: US)
  Receive Date: 20060131
  Receipt Date: 20140220
  Transmission Date: 20141002
  Serious: Yes (Death, Hospitalization, Other)
  Sender: FDA-Public Use
  Company Number: PHEH2006US01234

PATIENT
  Age: 60 Year
  Sex: Female
  Weight: 57 kg

DRUGS (16)
  1. AREDIA [Suspect]
     Indication: METASTASES TO BONE
     Dosage: 90 MG, QMO
     Route: 042
     Dates: start: 20040312, end: 20041221
  2. ZOMETA [Suspect]
     Indication: METASTASES TO BONE
     Route: 042
     Dates: start: 20021115, end: 200508
  3. PROCRIT [Concomitant]
     Indication: ANAEMIA
  4. VELCADE [Concomitant]
     Dosage: 2 MG
     Dates: start: 20040419, end: 20040611
  5. THALIDOMIDE [Concomitant]
     Indication: PLASMA CELL MYELOMA
     Dosage: 50 MG
     Route: 048
     Dates: start: 20040419, end: 20040516
  6. NEXIUM [Concomitant]
     Dosage: 40 MG, QD
     Route: 048
  7. CYMBALTA [Concomitant]
     Dosage: 60 MG, QHS
     Route: 048
  8. VIOXX [Concomitant]
     Dosage: 25 MG, QD
     Route: 048
  9. OXYCONTIN [Concomitant]
     Indication: PAIN
     Route: 048
  10. DEXAMETHASONE [Concomitant]
     Indication: PAIN
  11. XANAX [Concomitant]
  12. VENTOLIN                           /00139501/ [Concomitant]
  13. AUGMENTIN [Concomitant]
  14. VOLMAX [Concomitant]
     Dosage: 4 MG, BID
     Route: 048
  15. GABITRIL [Concomitant]
     Dosage: 4 MG, QD
     Route: 048
  16. ZYRTEC-D [Concomitant]

REACTIONS (62)
  - Pneumonia [Fatal]
  - Chronic obstructive pulmonary disease [Fatal]
  - Malignant neoplasm progression [Fatal]
  - Respiratory failure [Recovered/Resolved]
  - Mental status changes [Unknown]
  - Dehydration [Unknown]
  - Neuropathy peripheral [Unknown]
  - Pain [Unknown]
  - Pain in extremity [Unknown]
  - Renal failure [Unknown]
  - Osteonecrosis of jaw [Unknown]
  - Erythema [Unknown]
  - Swelling [Unknown]
  - Skin mass [Unknown]
  - Bone disorder [Unknown]
  - Osteomyelitis [Unknown]
  - Bone fistula [Unknown]
  - Wound secretion [Unknown]
  - Breath odour [Unknown]
  - Fall [Unknown]
  - Tooth loss [Unknown]
  - Anaemia [Unknown]
  - Unresponsive to stimuli [Unknown]
  - Pneumothorax [Unknown]
  - Atrial flutter [Recovered/Resolved]
  - Hypotension [Unknown]
  - Renal failure acute [Recovered/Resolved]
  - Shock [Recovered/Resolved]
  - Atrial fibrillation [Unknown]
  - Depression [Unknown]
  - Pyuria [Unknown]
  - Haematuria [Unknown]
  - Urinary tract infection [Unknown]
  - Pulmonary hypertension [Unknown]
  - Hypomagnesaemia [Unknown]
  - Decreased appetite [Unknown]
  - Gastrooesophageal reflux disease [Unknown]
  - Rhinitis allergic [Unknown]
  - Paraesthesia [Unknown]
  - Herpes zoster [Unknown]
  - Insomnia [Unknown]
  - Fistula discharge [Unknown]
  - Neuralgia [Unknown]
  - Sinusitis [Unknown]
  - Myoclonus [Unknown]
  - Exostosis [Unknown]
  - Spinal osteoarthritis [Unknown]
  - Hypoaesthesia [Unknown]
  - Ventricular hypertrophy [Unknown]
  - Hot flush [Unknown]
  - Constipation [Unknown]
  - Weight decreased [Unknown]
  - Productive cough [Unknown]
  - Arthralgia [Unknown]
  - Dizziness [Unknown]
  - Asthenia [Unknown]
  - Nasal congestion [Unknown]
  - Dyspnoea [Unknown]
  - Muscle spasms [Unknown]
  - Headache [Unknown]
  - Chest pain [Unknown]
  - Chest discomfort [Unknown]
